FAERS Safety Report 6236375-0 (Version None)
Quarter: 2009Q2

REPORT INFORMATION
  Report Type: 
  Country: None (occurrence: None)
  Receive Date: 20090617
  Receipt Date: 20090603
  Transmission Date: 20091009
  Serious: Yes (Hospitalization)
  Sender: FDA-Public Use
  Company Number: 2009SP001445

PATIENT
  Age: 78 Year
  Sex: Female
  Weight: 59 kg

DRUGS (4)
  1. XOPENEX [Suspect]
     Indication: ASTHMA
     Dosage: 1.25 MG/3ML;QID;INHALATION
     Route: 055
  2. IPRATROPIUM BROMIDE [Suspect]
     Dosage: QID, INHALATION
     Route: 055
  3. REQUIP [Concomitant]
  4. ALBUTEROL [Concomitant]

REACTIONS (3)
  - AORTIC VALVE STENOSIS [None]
  - GASTROINTESTINAL HAEMORRHAGE [None]
  - GASTROINTESTINAL OBSTRUCTION [None]
